FAERS Safety Report 15839345 (Version 1)
Quarter: 2019Q1

REPORT INFORMATION
  Report Type: Spontaneous
  Country: FR (occurrence: FR)
  Receive Date: 20190117
  Receipt Date: 20190117
  Transmission Date: 20190417
  Serious: Yes (Hospitalization)
  Sender: FDA-Public Use
  Company Number: FR-MYLANLABS-2019M1003762

PATIENT
  Age: 71 Year
  Sex: Female
  Weight: 86 kg

DRUGS (8)
  1. DUROGESIC [Suspect]
     Active Substance: FENTANYL
     Indication: VENOUS ULCER PAIN
     Dosage: 50 MICROGRAM, Q3D
     Route: 062
     Dates: end: 20180610
  2. SERETIDE [Concomitant]
     Active Substance: FLUTICASONE PROPIONATE\SALMETEROL XINAFOATE
     Dosage: UNK
  3. GABAPENTIN. [Suspect]
     Active Substance: GABAPENTIN
     Indication: PAIN
     Dosage: 300 MILLIGRAM, QD
     Route: 048
  4. LASILIX                            /00032601/ [Suspect]
     Active Substance: FUROSEMIDE
     Indication: HYPERTENSION
     Dosage: 60 MILLIGRAM, QD
     Route: 048
  5. DAFALGAN [Concomitant]
     Active Substance: ACETAMINOPHEN
     Dosage: UNK
  6. ADENURIC [Concomitant]
     Active Substance: FEBUXOSTAT
     Dosage: UNK
  7. ZOPICLONE [Concomitant]
     Active Substance: ZOPICLONE
     Dosage: UNK
  8. RAMIPRIL. [Concomitant]
     Active Substance: RAMIPRIL
     Dosage: UNK

REACTIONS (3)
  - Hypotension [Recovered/Resolved]
  - Somnolence [Recovered/Resolved]
  - Malaise [Recovered/Resolved]

NARRATIVE: CASE EVENT DATE: 20180610
